FAERS Safety Report 6931227-2 (Version None)
Quarter: 2010Q3

REPORT INFORMATION
  Report Type: 
  Country: None (occurrence: None)
  Receive Date: 20100816
  Receipt Date: 20100729
  Transmission Date: 20110219
  Serious: Yes (Other)
  Sender: FDA-Public Use
  Company Number: JHP201000229

PATIENT
  Age: 26 Year
  Sex: Male

DRUGS (2)
  1. DANTRIUM [Suspect]
     Dosage: ORAL
     Route: 048
  2. PHENOBARBITAL TAB [Suspect]
     Dosage: ORAL
     Route: 048

REACTIONS (1)
  - BLADDER CANCER [None]
